FAERS Safety Report 5538402-2 (Version None)
Quarter: 2007Q4

REPORT INFORMATION
  Report Type: 
  Country: None (occurrence: None)
  Receive Date: 20071205
  Receipt Date: 20071126
  Transmission Date: 20080405
  Serious: Yes (Other)
  Sender: FDA-Public Use
  Company Number: OSCN-PR-0711S-0475

PATIENT
  Age: 61 Year
  Sex: Male

DRUGS (2)
  1. OMNISCAN [Suspect]
     Indication: CONCUSSION
     Dosage: 40 ML, SINGLE DOSE, I.V.
     Route: 042
     Dates: start: 20060901, end: 20060901
  2. OMNISCAN [Suspect]
     Indication: METASTASES TO CENTRAL NERVOUS SYSTEM
     Dosage: 40 ML, SINGLE DOSE, I.V.
     Route: 042
     Dates: start: 20060901, end: 20060901

REACTIONS (1)
  - NEPHROGENIC SYSTEMIC FIBROSIS [None]
